FAERS Safety Report 4862602-8 (Version None)
Quarter: 2005Q4

REPORT INFORMATION
  Report Type: 
  Country: None (occurrence: None)
  Receive Date: 20051219
  Receipt Date: 20051219
  Transmission Date: 20060501
  Serious: Yes (Hospitalization, Disabling, Other)
  Sender: FDA-Public Use
  Company Number: None

PATIENT
  Sex: Female
  Weight: 99 kg

DRUGS (3)
  1. ZYPREXA [Suspect]
     Indication: SCHIZOPHRENIA
     Dosage: 10 MG  1 /DAY  PO  (DATES OF USE/DURATION:  3 YEARS, THEN 1.5 YEAR)
     Route: 048
  2. RISPERDAL [Suspect]
     Indication: PSYCHOTIC DISORDER
     Dosage: 2 MG  2 /DAY  IM
     Route: 030
     Dates: start: 20000904, end: 20040901
  3. CELEXA [Concomitant]

REACTIONS (5)
  - DISCOMFORT [None]
  - GASTROOESOPHAGEAL REFLUX DISEASE [None]
  - NAUSEA [None]
  - PANCREATITIS [None]
  - WEIGHT INCREASED [None]
